FAERS Safety Report 9391915 (Version 1)
Quarter: 2013Q3

REPORT INFORMATION
  Report Type: Report from Study
  Country: DE (occurrence: DE)
  Receive Date: 20130709
  Receipt Date: 20130709
  Transmission Date: 20140515
  Serious: Yes (Other)
  Sender: FDA-Public Use
  Company Number: DE-BAXTER-2013BAX025553

PATIENT
  Age: 65 Year
  Sex: Female

DRUGS (10)
  1. ENDOXAN 1G [Suspect]
     Indication: BREAST CANCER
     Route: 065
     Dates: start: 20130410
  2. ENDOXAN 1G [Suspect]
     Route: 065
     Dates: start: 20130612
  3. TRASTUZUMAB [Suspect]
     Indication: BREAST CANCER
     Route: 065
     Dates: start: 20130115
  4. TRASTUZUMAB [Suspect]
     Route: 065
     Dates: start: 20130612
  5. PERTUZUMAB [Suspect]
     Indication: BREAST CANCER
     Route: 065
     Dates: start: 20130115
  6. PERTUZUMAB [Suspect]
     Route: 065
     Dates: start: 20130612
  7. PACLITAXEL [Suspect]
     Indication: BREAST CANCER
     Route: 065
     Dates: start: 20130115
  8. PACLITAXEL [Suspect]
     Route: 065
     Dates: start: 20130326
  9. EPIRUBICIN [Suspect]
     Indication: BREAST CANCER
     Route: 065
     Dates: start: 20130410
  10. EPIRUBICIN [Suspect]
     Route: 065
     Dates: start: 20130612

REACTIONS (1)
  - Ejection fraction decreased [Not Recovered/Not Resolved]
